FAERS Safety Report 16738817 (Version 2)
Quarter: 2019Q3

REPORT INFORMATION
  Report Type: Report from Study
  Country: AU (occurrence: AU)
  Receive Date: 20190826
  Receipt Date: 20190828
  Transmission Date: 20191005
  Serious: Yes (Death)
  Sender: FDA-Public Use
  Company Number: AU-ROCHE-2380050

PATIENT
  Age: 88 Year
  Sex: Female
  Weight: 77.35 kg

DRUGS (4)
  1. MEXALEN [Concomitant]
     Active Substance: ACETAMINOPHEN
     Indication: NAUSEA
     Route: 058
     Dates: start: 20190805
  2. ZANUBRUTINIB [Suspect]
     Active Substance: ZANUBRUTINIB
     Indication: B-CELL LYMPHOMA
     Dosage: ON 01/AUG/2019, SHE RECEIVED MOST RECENT DOSE OF ZANUBRUTINIB PRIOR TO EVENT ONSET.
     Route: 065
     Dates: start: 20160124
  3. MIDAZOLAM [Concomitant]
     Active Substance: MIDAZOLAM HYDROCHLORIDE
     Indication: AGITATION
     Route: 058
     Dates: start: 20190805
  4. OBINUTUZUMAB. [Suspect]
     Active Substance: OBINUTUZUMAB
     Indication: B-CELL LYMPHOMA
     Dosage: DATE OF LAST DOSE PRIOR TO SAE WAS 15/JUN/2016
     Route: 042
     Dates: start: 20160125

REACTIONS (1)
  - Breast cancer metastatic [Fatal]

NARRATIVE: CASE EVENT DATE: 20190807
